FAERS Safety Report 8950954 (Version 1)
Quarter: 2012Q4

REPORT INFORMATION
  Report Type: 
  Country: JP (occurrence: JP)
  Receive Date: 20121207
  Receipt Date: 20121207
  Transmission Date: 20130627
  Serious: Yes (Death, Other)
  Sender: FDA-Public Use
  Company Number: PHHY2012JP108361

PATIENT
  Age: 54 Year
  Sex: Male

DRUGS (2)
  1. IMATINIB [Suspect]
     Indication: C-KIT GENE MUTATION
     Dosage: 200 mg, daily
     Dates: end: 200809
  2. IMATINIB [Suspect]
     Dosage: 400 mg, daily
     Dates: start: 200809

REACTIONS (6)
  - Death [Fatal]
  - Malignant neoplasm progression [Unknown]
  - Metastases to liver [Unknown]
  - Metastases to lung [Unknown]
  - Metastases to lymph nodes [Unknown]
  - General physical health deterioration [Unknown]
